FAERS Safety Report 7565643-5 (Version None)
Quarter: 2011Q2

REPORT INFORMATION
  Report Type: 
  Country: None (occurrence: None)
  Receive Date: 20110623
  Receipt Date: 20110622
  Transmission Date: 20111010
  Serious: Yes (Other)
  Sender: FDA-Public Use
  Company Number: US-CEPHALON-2011002871

PATIENT

DRUGS (2)
  1. RITUXIMAB [Concomitant]
  2. TREANDA [Suspect]
     Route: 042

REACTIONS (1)
  - DEMYELINATING POLYNEUROPATHY [None]
